FAERS Safety Report 7269402-2 (Version None)
Quarter: 2011Q1

REPORT INFORMATION
  Report Type: 
  Country: None (occurrence: None)
  Receive Date: 20110125
  Receipt Date: 20110110
  Transmission Date: 20110831
  Serious: Yes (Other)
  Sender: FDA-Public Use
  Company Number: 1000018215

PATIENT
  Age: 80 Year
  Sex: Male

DRUGS (1)
  1. MEMANTINE [Suspect]
     Dates: start: 20080101

REACTIONS (3)
  - CHOLESTASIS [None]
  - CHOLELITHIASIS [None]
  - PANCREATITIS ACUTE [None]
